FAERS Safety Report 25280062 (Version 1)
Quarter: 2025Q2

REPORT INFORMATION
  Report Type: Spontaneous
  Country: US (occurrence: US)
  Receive Date: 20250507
  Receipt Date: 20250507
  Transmission Date: 20250716
  Serious: No
  Sender: JOHNSON AND JOHNSON
  Company Number: US-JNJFOC-20250440099

PATIENT
  Age: 92 Year
  Sex: Female

DRUGS (2)
  1. BALVERSA [Suspect]
     Active Substance: ERDAFITINIB
     Indication: Bladder cancer
     Route: 048
  2. BALVERSA [Suspect]
     Active Substance: ERDAFITINIB
     Route: 048

REACTIONS (6)
  - Onychoclasis [Unknown]
  - Hyponatraemia [Unknown]
  - Fatigue [Unknown]
  - Adverse event [Unknown]
  - Decreased activity [Unknown]
  - Depressed mood [Unknown]
